FAERS Safety Report 7456940-2 (Version None)
Quarter: 2011Q1

REPORT INFORMATION
  Report Type: 
  Country: None (occurrence: None)
  Receive Date: 20110302
  Receipt Date: 20101216
  Transmission Date: 20110831
  Serious: Yes (Hospitalization)
  Sender: FDA-Public Use
  Company Number: 024009

PATIENT
  Sex: Female
  Weight: 40.8 kg

DRUGS (2)
  1. TPN [Concomitant]
  2. CIMZIA [Suspect]
     Indication: CROHN'S DISEASE
     Dosage: (200 MG 1X/2 WEEKS SUBCUTANEOUS)
     Route: 058
     Dates: start: 20090101, end: 20101202

REACTIONS (4)
  - PYREXIA [None]
  - FISTULA DISCHARGE [None]
  - FEELING ABNORMAL [None]
  - CROHN'S DISEASE [None]
